FAERS Safety Report 4498987-4 (Version None)
Quarter: 2004Q4

REPORT INFORMATION
  Report Type: 
  Country: None (occurrence: None)
  Receive Date: 20041108
  Receipt Date: 20041026
  Transmission Date: 20050328
  Serious: Yes (Life-Threatening, Hospitalization, Disabling)
  Sender: FDA-Public Use
  Company Number: STA-AE-04-MTX-518

PATIENT
  Age: 35 Year
  Sex: Female

DRUGS (10)
  1. METHOTREXATE [Suspect]
     Indication: RHEUMATOID ARTHRITIS
     Dosage: SEE IMAGE
     Route: 048
     Dates: start: 20020301, end: 20020301
  2. METHOTREXATE [Suspect]
     Indication: RHEUMATOID ARTHRITIS
     Dosage: SEE IMAGE
     Route: 048
     Dates: start: 20020401, end: 20020601
  3. METHOTREXATE [Suspect]
     Indication: RHEUMATOID ARTHRITIS
     Dosage: SEE IMAGE
     Route: 048
     Dates: start: 20020701, end: 20021011
  4. RHEUMATREX [Suspect]
     Indication: RHEUMATOID ARTHRITIS
     Dosage: 6 MG 1X PER 1 WK, ORAL, SEE IMAGE
     Route: 048
     Dates: start: 20010101, end: 20011201
  5. RHEUMATREX [Suspect]
     Indication: RHEUMATOID ARTHRITIS
     Dosage: 6 MG 1X PER 1 WK, ORAL, SEE IMAGE
     Route: 048
     Dates: start: 20020101, end: 20020201
  6. SULFASALAZINE [Concomitant]
  7. VOLTAREN [Concomitant]
  8. PREDNISOLONE [Concomitant]
  9. KELNAC (PLAUNOTOL) [Concomitant]
  10. ALFAROL (ALFACALCIDOL) [Concomitant]

REACTIONS (5)
  - COUGH [None]
  - HYPOXIA [None]
  - LUNG DISORDER [None]
  - NON-CARDIOGENIC PULMONARY OEDEMA [None]
  - PYREXIA [None]
